FAERS Safety Report 5130887-9 (Version None)
Quarter: 2006Q4

REPORT INFORMATION
  Report Type: 
  Country: None (occurrence: None)
  Receive Date: 20061013
  Receipt Date: 20061003
  Transmission Date: 20070319
  Serious: Yes (Death, Hospitalization)
  Sender: FDA-Public Use
  Company Number: 2006BI014052

PATIENT
  Age: 50 Year
  Sex: Female
  Weight: 63.5036 kg

DRUGS (2)
  1. AVONEX [Suspect]
     Indication: MULTIPLE SCLEROSIS
     Dosage: 30 UG;QW;IM
     Route: 030
  2. MORPHINE [Concomitant]

REACTIONS (3)
  - CONDITION AGGRAVATED [None]
  - GRAND MAL CONVULSION [None]
  - MULTIPLE SCLEROSIS [None]
